FAERS Safety Report 5603424-X (Version None)
Quarter: 2008Q1

REPORT INFORMATION
  Report Type: 
  Country: None (occurrence: None)
  Receive Date: 20080123
  Receipt Date: 20080107
  Transmission Date: 20080703
  Serious: Yes (Hospitalization, Other)
  Sender: FDA-Public Use
  Company Number: 100#08#2008-00235

PATIENT
  Age: 44 Year
  Sex: Female

DRUGS (1)
  1. IBUPROFEN [Suspect]
     Indication: DYSMENORRHOEA
     Dosage: 8 X 400 MG (OFTEN USED FOR MENSTRUATION PAINS AT AN UNKNOWN DOSE)

REACTIONS (4)
  - FOCAL SEGMENTAL GLOMERULOSCLEROSIS [None]
  - HAEMOLYTIC URAEMIC SYNDROME [None]
  - THROMBOTIC MICROANGIOPATHY [None]
  - VAGINAL HAEMORRHAGE [None]
